FAERS Safety Report 9236238 (Version 1)
Quarter: 2013Q2

REPORT INFORMATION
  Report Type: Spontaneous
  Country: US (occurrence: None)
  Receive Date: 20130416
  Receipt Date: 20130416
  Transmission Date: 20140414
  Serious: Yes (Other)
  Sender: FDA-Public Use
  Company Number: None

PATIENT
  Age: 5 Year
  Sex: Female
  Weight: 16.78 kg

DRUGS (1)
  1. AZITHROMYCIN [Suspect]
     Indication: EAR PAIN
     Dates: start: 20130312, end: 20130313

REACTIONS (2)
  - Tinnitus [None]
  - Deafness [None]
